FAERS Safety Report 23737863 (Version 1)
Quarter: 2024Q2

REPORT INFORMATION
  Report Type: Spontaneous
  Country: RU (occurrence: RU)
  Receive Date: 20240412
  Receipt Date: 20240412
  Transmission Date: 20240716
  Serious: Yes (Other)
  Sender: FDA-Public Use
  Company Number: RU-ELI_LILLY_AND_COMPANY-RU202404007458

PATIENT
  Age: 31 Year
  Sex: Male

DRUGS (4)
  1. CYRAMZA [Suspect]
     Active Substance: RAMUCIRUMAB
     Indication: Gastric cancer
     Dosage: 8 MG/KG, CYCLICAL (8 MG/KG ON THE 1ST AND 15TH DAY OF THE 28-DAY CYCLE)
     Route: 065
     Dates: start: 201611
  2. CYRAMZA [Suspect]
     Active Substance: RAMUCIRUMAB
     Dosage: 8 MG/KG, CYCLICAL (8 MG/KG EVERY 14 DAYS( 22 ADMINISTRATIONS: CYCLES 12-22))
     Route: 065
     Dates: end: 201904
  3. PACLITAXEL [Suspect]
     Active Substance: PACLITAXEL
     Indication: Gastric cancer
     Dosage: 80 MG/M2, CYCLICAL (80 MG/M2 ON THE 1ST, 8TH AND 15TH DAY OF THE 28-DAY CYCLE)
     Route: 065
     Dates: start: 201611
  4. PACLITAXEL [Suspect]
     Active Substance: PACLITAXEL
     Dosage: UNK UNK, UNKNOWN
     Route: 065
     Dates: end: 201904

REACTIONS (2)
  - Jaundice cholestatic [Unknown]
  - Malignant neoplasm progression [Unknown]

NARRATIVE: CASE EVENT DATE: 20190401
